FAERS Safety Report 9379301 (Version 1)
Quarter: 2013Q3

REPORT INFORMATION
  Report Type: Spontaneous
  Country: GB (occurrence: GB)
  Receive Date: 20130702
  Receipt Date: 20130702
  Transmission Date: 20140515
  Serious: Yes (Death)
  Sender: FDA-Public Use
  Company Number: GB-PFIZER INC-2013192483

PATIENT
  Age: 49 Year
  Sex: Male
  Weight: 200 kg

DRUGS (1)
  1. METRONIDAZOLE [Suspect]
     Indication: ORAL INFECTION
     Dosage: UNK
     Route: 048
     Dates: start: 20130520

REACTIONS (1)
  - Anaphylactic reaction [Fatal]
